FAERS Safety Report 4408206-2 (Version None)
Quarter: 2004Q3

REPORT INFORMATION
  Report Type: 
  Country: None (occurrence: None)
  Receive Date: 20040722
  Receipt Date: 20040715
  Transmission Date: 20050211
  Serious: No
  Sender: FDA-Public Use
  Company Number: 04P-056-0265518-00

PATIENT
  Age: 21 Year
  Sex: Female

DRUGS (4)
  1. DEPAKOTE [Suspect]
     Indication: AFFECTIVE DISORDER
     Dosage: 500 MG, 3 IN 1 D, ORAL
     Route: 048
  2. TRAMADOL HCL [Concomitant]
  3. ACETAMINOPHEN W/ CODEINE [Concomitant]
  4. PRAZEPAM [Concomitant]

REACTIONS (4)
  - ALANINE AMINOTRANSFERASE INCREASED [None]
  - ALCOHOL USE [None]
  - CONVULSION [None]
  - MACROCYTOSIS [None]
